FAERS Safety Report 4784935-6 (Version None)
Quarter: 2005Q3

REPORT INFORMATION
  Report Type: 
  Country: None (occurrence: None)
  Receive Date: 20050930
  Receipt Date: 20050922
  Transmission Date: 20060218
  Serious: Yes (Other)
  Sender: FDA-Public Use
  Company Number: PHNU2005DE03279

PATIENT

DRUGS (1)
  1. METHERGINE [Suspect]

REACTIONS (3)
  - CONDITION AGGRAVATED [None]
  - DRUG EXPOSURE VIA BREAST MILK [None]
  - JAUNDICE [None]
